FAERS Safety Report 7913301-7 (Version None)
Quarter: 2011Q4

REPORT INFORMATION
  Report Type: 
  Country: None (occurrence: None)
  Receive Date: 20111114
  Receipt Date: 20111109
  Transmission Date: 20120403
  Serious: Yes (Death, Other)
  Sender: FDA-Public Use
  Company Number: US-ASTRAZENECA-2011SE32300

PATIENT
  Age: 68 Year
  Sex: Female
  Weight: 88 kg

DRUGS (3)
  1. SYMBICORT [Suspect]
     Dosage: 160/4.5 MCG, TWO PUFF TWO TIMES A DAY
     Route: 055
  2. SEROQUEL XR [Suspect]
     Indication: BIPOLAR DISORDER
     Route: 048
     Dates: start: 20070101
  3. SIMVASTATIN [Concomitant]

REACTIONS (5)
  - BONE NEOPLASM MALIGNANT [None]
  - LUNG NEOPLASM MALIGNANT [None]
  - OESOPHAGEAL DISORDER [None]
  - NEOPLASM MALIGNANT [None]
  - AMNESIA [None]
